FAERS Safety Report 8987900 (Version 1)
Quarter: 2012Q4

REPORT INFORMATION
  Report Type: 
  Country: FR (occurrence: FR)
  Receive Date: 20121227
  Receipt Date: 20121227
  Transmission Date: 20130627
  Serious: Yes (Other)
  Sender: FDA-Public Use
  Company Number: FR-GLAXOSMITHKLINE-B0854515A

PATIENT
  Sex: Female

DRUGS (1)
  1. NIQUITIN 2MG [Suspect]
     Indication: EX-TOBACCO USER
     Route: 002

REACTIONS (2)
  - Ectopic pregnancy [Unknown]
  - Exposure during pregnancy [Unknown]
